FAERS Safety Report 9146831 (Version 1)
Quarter: 2013Q1

REPORT INFORMATION
  Report Type: Spontaneous
  Country: US (occurrence: None)
  Receive Date: 20130208
  Receipt Date: 20130208
  Transmission Date: 20140127
  Serious: Yes (Death)
  Sender: FDA-Public Use
  Company Number: 2013020003

PATIENT
  Age: 43 Year
  Sex: Male

DRUGS (6)
  1. FENTANYL (FENTANYL) [Suspect]
  2. OXYCODONE (OXYCODONE) [Suspect]
  3. DIAZEPAM (DIAZEPAM) [Suspect]
  4. ALPRAZOLAM (ALPRAZOLAM) [Suspect]
  5. PHENYTOIN [Suspect]
  6. FLUOXETINE [Suspect]

REACTIONS (3)
  - Drug abuse [None]
  - Cardiac arrest [None]
  - Respiratory arrest [None]
